FAERS Safety Report 12143089 (Version 1)
Quarter: 2016Q1

REPORT INFORMATION
  Report Type: Spontaneous
  Country: US (occurrence: US)
  Receive Date: 20160303
  Receipt Date: 20160303
  Transmission Date: 20160526
  Serious: No
  Sender: FDA-Public Use
  Company Number: US-BIOGEN-2016BI00194329

PATIENT
  Age: 34 Year
  Sex: Female

DRUGS (1)
  1. TYSABRI [Suspect]
     Active Substance: NATALIZUMAB
     Indication: MULTIPLE SCLEROSIS
     Route: 042
     Dates: start: 20151109

REACTIONS (10)
  - Herpes zoster [Recovered/Resolved]
  - Fatigue [Not Recovered/Not Resolved]
  - Sensory loss [Not Recovered/Not Resolved]
  - Dysarthria [Not Recovered/Not Resolved]
  - Optic nerve disorder [Not Recovered/Not Resolved]
  - Peripheral coldness [Not Recovered/Not Resolved]
  - Neuralgia [Not Recovered/Not Resolved]
  - Muscular weakness [Not Recovered/Not Resolved]
  - Vertigo [Not Recovered/Not Resolved]
  - Decreased immune responsiveness [Not Recovered/Not Resolved]

NARRATIVE: CASE EVENT DATE: 20160111
